FAERS Safety Report 6603720-3 (Version None)
Quarter: 2010Q1

REPORT INFORMATION
  Report Type: 
  Country: None (occurrence: None)
  Receive Date: 20100226
  Receipt Date: 20090128
  Transmission Date: 20100710
  Serious: No
  Sender: FDA-Public Use
  Company Number: A0762205A

PATIENT
  Age: 60 Year
  Sex: Male
  Weight: 92 kg

DRUGS (1)
  1. LAMICTAL CD [Suspect]
     Indication: EPILEPSY
     Dosage: 100MG AT NIGHT
     Route: 048
     Dates: start: 20080416, end: 20080911

REACTIONS (2)
  - DRUG ERUPTION [None]
  - RASH [None]
